FAERS Safety Report 4512825-2 (Version None)
Quarter: 2004Q4

REPORT INFORMATION
  Report Type: 
  Country: None (occurrence: None)
  Receive Date: 20041130
  Receipt Date: 20041118
  Transmission Date: 20050328
  Serious: Yes (Other)
  Sender: FDA-Public Use
  Company Number: IN-JNJFOC-20041100345

PATIENT
  Age: 45 Year
  Sex: Male

DRUGS (4)
  1. REMICADE [Suspect]
     Route: 042
  2. REMICADE [Suspect]
     Route: 042
  3. MESACOL [Concomitant]
     Indication: CROHN'S DISEASE
     Dosage: ^TDS^
  4. PANTOCID [Concomitant]

REACTIONS (9)
  - ABDOMINAL PAIN [None]
  - ASTHENIA [None]
  - DRUG INEFFECTIVE [None]
  - DYSURIA [None]
  - INFUSION RELATED REACTION [None]
  - LOOSE STOOLS [None]
  - MYALGIA [None]
  - PYREXIA [None]
  - SECRETION DISCHARGE [None]
